FAERS Safety Report 25683251 (Version 1)
Quarter: 2025Q3

REPORT INFORMATION
  Report Type: Spontaneous
  Country: JP (occurrence: JP)
  Receive Date: 20250814
  Receipt Date: 20250814
  Transmission Date: 20251020
  Serious: Yes (Other)
  Sender: PFIZER
  Company Number: JP-PFIZER INC-PV202500098078

PATIENT
  Age: 93 Year
  Sex: Male

DRUGS (2)
  1. MEROPENEM [Suspect]
     Active Substance: MEROPENEM
     Dosage: 1 G, 2X/DAY
     Route: 041
  2. MEROPENEM [Suspect]
     Active Substance: MEROPENEM
     Dosage: 0.5 G, DAILY
     Route: 041

REACTIONS (2)
  - Epilepsy [Unknown]
  - Dialysis [Unknown]
